FAERS Safety Report 10397543 (Version 1)
Quarter: 2014Q1

REPORT INFORMATION
  Report Type: Spontaneous
  Country: US (occurrence: None)
  Receive Date: 20130815
  Receipt Date: 20130815
  Transmission Date: 20141002
  Serious: Yes (Other)
  Sender: FDA-Public Use
  Company Number: ADR-2013-00830

PATIENT
  Sex: Male

DRUGS (1)
  1. LIORESAL INTRATHECAL (BACLOFEN INJECTION)2000MCG/ML [Suspect]
     Indication: MUSCLE SPASTICITY
     Dosage: 954 MCG/DAY

REACTIONS (12)
  - Implant site infection [None]
  - Pyrexia [None]
  - Implant site erythema [None]
  - Implant site discharge [None]
  - Swelling [None]
  - Pain [None]
  - Hyperhidrosis [None]
  - Rash [None]
  - Pruritus [None]
  - Muscle spasticity [None]
  - Mental status changes [None]
  - Drug withdrawal syndrome [None]
